FAERS Safety Report 10657420 (Version 1)
Quarter: 2014Q4

REPORT INFORMATION
  Report Type: Spontaneous
  Country: IE (occurrence: None)
  Receive Date: 20141215
  Receipt Date: 20141215
  Transmission Date: 20150529
  Serious: Yes (Hospitalization)
  Sender: FDA-Public Use
  Company Number: AXC-2014-000750

PATIENT
  Age: 40 Year
  Sex: Female

DRUGS (2)
  1. NITROGLYCERIN (NITROGLYCERIN) RECTAL OINTMENT [Suspect]
     Active Substance: NITROGLYCERIN
     Indication: ANAL FISSURE
     Dosage: 1 DF, Q 12 HOURS, TOPICAL
     Route: 061
     Dates: start: 20141021, end: 20141022
  2. ELTROXIN [Suspect]
     Active Substance: LEVOTHYROXINE
     Indication: HYPOTHYROIDISM
     Dosage: 75UG/100UG , ON ALTERNATE DAYS
     Dates: start: 20090901, end: 20141106

REACTIONS (4)
  - Loss of consciousness [None]
  - Blood pressure decreased [None]
  - Anxiety [None]
  - Hyperhidrosis [None]

NARRATIVE: CASE EVENT DATE: 20141021
